FAERS Safety Report 5007997-X (Version None)
Quarter: 2006Q2

REPORT INFORMATION
  Report Type: 
  Country: None (occurrence: None)
  Receive Date: 20060518
  Receipt Date: 20060505
  Transmission Date: 20061013
  Serious: Yes (Death)
  Sender: FDA-Public Use
  Company Number: 2006061105

PATIENT
  Age: 59 Year
  Sex: Female

DRUGS (2)
  1. EPIRUBICIN [Suspect]
     Indication: BREAST CANCER
     Dosage: (80 MG, 21 DAYS), INTRAVENOUS; SEE IMAGE
     Route: 042
     Dates: start: 20060220, end: 20060315
  2. DOCETAXEL (DOCETAXEL) [Concomitant]

REACTIONS (1)
  - MYOCARDIAL INFARCTION [None]
